FAERS Safety Report 21628186 (Version 3)
Quarter: 2023Q1

REPORT INFORMATION
  Report Type: Report from Study
  Country: US (occurrence: US)
  Receive Date: 20221122
  Receipt Date: 20230301
  Transmission Date: 20230417
  Serious: Yes (Other)
  Sender: FDA-Public Use
  Company Number: US-ABBVIE-22K-163-4450403-00

PATIENT
  Sex: Male
  Weight: 93 kg

DRUGS (10)
  1. HUMIRA [Suspect]
     Active Substance: ADALIMUMAB
     Indication: Rheumatoid arthritis
     Dosage: CITRATE FREE
     Route: 058
     Dates: start: 20200724
  2. CINNAMON [Concomitant]
     Active Substance: CINNAMON
     Indication: Product used for unknown indication
  3. PFIZER-BIONTECH COVID-19 VACCINE [Concomitant]
     Active Substance: TOZINAMERAN
     Indication: COVID-19 immunisation
     Dosage: TIME INTERVAL: 1 TOTAL
     Route: 030
  4. CHONDROITIN SULFATE A\GLUCOSAMINE [Concomitant]
     Active Substance: CHONDROITIN SULFATE A\GLUCOSAMINE
     Indication: Product used for unknown indication
     Dosage: REGULAR  STRENGTH TABS
  5. MODERNA COVID-19 VACCINE [Concomitant]
     Active Substance: ELASOMERAN
     Indication: COVID-19 immunisation
     Dosage: TIME INTERVAL: 1 TOTAL: 1ST DOSE
     Route: 030
     Dates: start: 20210913, end: 20210913
  6. MODERNA COVID-19 VACCINE [Concomitant]
     Active Substance: ELASOMERAN
     Indication: COVID-19 immunisation
     Dosage: TIME INTERVAL: 1 TOTAL: 2ND DOSE
     Route: 030
     Dates: start: 20211013, end: 20211013
  7. EQUATE DAILY FIBER [Concomitant]
     Active Substance: ACETAMINOPHEN\DOXYLAMINE SUCCINATE\PHENYLEPHRINE HYDROCHLORIDE\PSYLLIUM HUSK
     Indication: Product used for unknown indication
  8. GINGER [Concomitant]
     Active Substance: GINGER
     Indication: Product used for unknown indication
     Dosage: CAPS
  9. VITAMIN B COMPLEX [Concomitant]
     Active Substance: CYANOCOBALAMIN\DEXPANTHENOL\NIACINAMIDE\PYRIDOXINE HYDROCHLORIDE\RIBOFLAVIN 5^-PHOSPHATE SODIUM\THIA
     Indication: Product used for unknown indication
     Dosage: CAPS
  10. PANAX GINSENG WHOLE [Concomitant]
     Active Substance: PANAX GINSENG WHOLE
     Indication: Product used for unknown indication
     Dosage: TABS

REACTIONS (22)
  - Diabetes mellitus [Unknown]
  - Insomnia [Unknown]
  - Ligament sprain [Recovering/Resolving]
  - Sinus disorder [Unknown]
  - Epistaxis [Unknown]
  - Gastrooesophageal reflux disease [Unknown]
  - Bladder outlet obstruction [Unknown]
  - Carpal tunnel syndrome [Unknown]
  - Body mass index abnormal [Unknown]
  - Hypercholesterolaemia [Unknown]
  - Foot deformity [Unknown]
  - Nodule [Unknown]
  - Neck pain [Unknown]
  - Nasal septum deviation [Unknown]
  - Surgery [Unknown]
  - Flank pain [Unknown]
  - Prostatic specific antigen increased [Unknown]
  - Arthralgia [Unknown]
  - Hypertension [Unknown]
  - COVID-19 [Unknown]
  - Nasal turbinate hypertrophy [Unknown]
  - Blood pressure increased [Recovered/Resolved]
